FAERS Safety Report 16880843 (Version 4)
Quarter: 2019Q4

REPORT INFORMATION
  Report Type: Report from Study
  Country: PH (occurrence: PH)
  Receive Date: 20191003
  Receipt Date: 20191203
  Transmission Date: 20200122
  Serious: Yes (Hospitalization)
  Sender: FDA-Public Use
  Company Number: PH-TOLMAR, INC.-19PH000308

PATIENT
  Age: 79 Year
  Sex: Male

DRUGS (22)
  1. PARACETAMOL [Concomitant]
     Active Substance: ACETAMINOPHEN
     Dosage: UNK
     Dates: start: 20180521, end: 20180725
  2. ZYKAST [Concomitant]
     Dosage: UNK
     Dates: start: 20181218, end: 20181224
  3. AZITHROMYCIN ANHYDROUS. [Concomitant]
     Active Substance: AZITHROMYCIN ANHYDROUS
     Dosage: UNK
     Dates: start: 20190129, end: 20190202
  4. NEBILET [Concomitant]
     Active Substance: NEBIVOLOL
     Dosage: UNK
     Dates: start: 2008
  5. VIARTRIL-S [GLUCOSAMINE HYDROCHLORIDE] [Concomitant]
     Dosage: UNK
     Dates: start: 20190715
  6. ARCOXIA [Concomitant]
     Active Substance: ETORICOXIB
     Dosage: UNK
     Dates: start: 20190715
  7. ELIGARD [Suspect]
     Active Substance: LEUPROLIDE ACETATE
     Indication: HORMONE-DEPENDENT PROSTATE CANCER
     Dosage: 22.5 MG Q3 MONTHS
     Route: 058
     Dates: start: 20180517, end: 20190807
  8. CALCIUM CARBONATE. [Concomitant]
     Active Substance: CALCIUM CARBONATE
     Dosage: UNK
     Dates: start: 20180516
  9. CANDESARTAN. [Concomitant]
     Active Substance: CANDESARTAN
     Dosage: UNK
     Dates: start: 2008
  10. PROZELAX [Concomitant]
     Dosage: UNK
     Dates: start: 2016
  11. ERDOSTEINE [Concomitant]
     Active Substance: ERDOSTEINE
     Dosage: UNK
     Dates: start: 20181218, end: 20181222
  12. TRAMADOL. [Concomitant]
     Active Substance: TRAMADOL
     Dosage: UNK
     Dates: start: 20181118
  13. AMLODIPINE [Concomitant]
     Active Substance: AMLODIPINE BESYLATE
     Dosage: UNK
     Dates: start: 2008
  14. TRAMADOL/PARACETAMOL [Concomitant]
     Active Substance: ACETAMINOPHEN\TRAMADOL
     Dosage: UNK
     Dates: start: 20181023, end: 20181023
  15. FASTUM [Concomitant]
     Active Substance: KETOPROFEN
     Dosage: UNK
     Dates: start: 20190706
  16. SINUPRET FORTE [Concomitant]
     Active Substance: HERBALS
     Dosage: UNK
     Dates: start: 20181218, end: 20181220
  17. ACETYLCYSTEINE. [Concomitant]
     Active Substance: ACETYLCYSTEINE
     Dosage: UNK
     Dates: start: 20180722, end: 20180725
  18. CELECOXIB. [Concomitant]
     Active Substance: CELECOXIB
     Dosage: UNK
     Dates: start: 20190108, end: 20190712
  19. CEFUROXIME. [Concomitant]
     Active Substance: CEFUROXIME
     Dosage: UNK
     Dates: start: 20190807
  20. SANGOBION [ASCORBIC ACID;COPPER SULFATE;CYANOCOBALAMIN;FERROUS GLUCONA [Concomitant]
     Dosage: UNK
     Dates: start: 20181218, end: 20190309
  21. ACETYLCYSTEINE. [Concomitant]
     Active Substance: ACETYLCYSTEINE
     Dosage: UNK
     Dates: start: 20190129, end: 20190202
  22. OMEPRAZOLE. [Concomitant]
     Active Substance: OMEPRAZOLE
     Dosage: UNK
     Dates: start: 20180516

REACTIONS (2)
  - Pneumonia [Recovered/Resolved]
  - Pneumonia [Recovered/Resolved]

NARRATIVE: CASE EVENT DATE: 20180722
